FAERS Safety Report 13126123 (Version 1)
Quarter: 2017Q1

REPORT INFORMATION
  Report Type: Report from Study
  Country: US (occurrence: US)
  Receive Date: 20170118
  Receipt Date: 20170118
  Transmission Date: 20170428
  Serious: Yes (Death, Hospitalization)
  Sender: FDA-Public Use
  Company Number: US-ARIAD-2016US007402

PATIENT
  Age: 86 Year
  Sex: Female

DRUGS (1)
  1. ICLUSIG [Suspect]
     Active Substance: PONATINIB
     Indication: CHRONIC MYELOID LEUKAEMIA (IN REMISSION)
     Dosage: 45 MG, QD
     Route: 048
     Dates: start: 20150917

REACTIONS (2)
  - Death [Fatal]
  - Dehydration [Unknown]

NARRATIVE: CASE EVENT DATE: 20161202
